FAERS Safety Report 25076055 (Version 2)
Quarter: 2025Q1

REPORT INFORMATION
  Report Type: Spontaneous
  Country: ES (occurrence: ES)
  Receive Date: 20250313
  Receipt Date: 20250318
  Transmission Date: 20250409
  Serious: Yes (Other)
  Sender: ALCON
  Company Number: ES-ALCON LABORATORIES-ALC2025ES001471

PATIENT

DRUGS (1)
  1. BSS [Suspect]
     Active Substance: CALCIUM CHLORIDE\MAGNESIUM CHLORIDE\POTASSIUM CHLORIDE\SODIUM ACETATE\SODIUM CHLORIDE\SODIUM CITRATE
     Indication: Product used for unknown indication
     Route: 065
     Dates: start: 202401

REACTIONS (1)
  - Corneal opacity [Recovered/Resolved]

NARRATIVE: CASE EVENT DATE: 20240101
